FAERS Safety Report 8029260-5 (Version None)
Quarter: 2012Q1

REPORT INFORMATION
  Report Type: 
  Country: None (occurrence: None)
  Receive Date: 20120106
  Receipt Date: 20120106
  Transmission Date: 20120608
  Serious: Yes (Hospitalization)
  Sender: FDA-Public Use
  Company Number: US-B.I. PHARMACEUTICALS,INC./RIDGEFIELD-2012-BP-00299BP

PATIENT
  Age: 65 Year
  Sex: Male

DRUGS (2)
  1. UNKNOWN ANTIHYPERTENSIVE [Concomitant]
     Indication: HYPERTENSION
  2. PRADAXA [Suspect]
     Indication: CEREBROVASCULAR ACCIDENT PROPHYLAXIS
     Dosage: 300 MG
     Route: 048
     Dates: start: 20110801, end: 20111101

REACTIONS (1)
  - CEREBROVASCULAR ACCIDENT [None]
